FAERS Safety Report 8166763-7 (Version None)
Quarter: 2012Q1

REPORT INFORMATION
  Report Type: 
  Country: None (occurrence: None)
  Receive Date: 20120227
  Receipt Date: 20120221
  Transmission Date: 20120608
  Serious: Yes (Death, Life-Threatening)
  Sender: FDA-Public Use
  Company Number: FR-ROCHE-1042187

PATIENT
  Sex: Female
  Weight: 67 kg

DRUGS (7)
  1. TEMOZOLOMIDE [Suspect]
     Indication: BRAIN NEOPLASM MALIGNANT
     Dates: start: 20120111
  2. AVASTIN [Suspect]
     Indication: BRAIN NEOPLASM MALIGNANT
     Dates: start: 20120111, end: 20120208
  3. METHYLPREDNISOLONE [Suspect]
     Indication: PRODUCT USED FOR UNKNOWN INDICATION
     Route: 048
  4. NEXIUM [Concomitant]
     Route: 048
  5. POTASSIUM CHLORIDE [Concomitant]
     Indication: HYPOKALAEMIA
     Route: 048
  6. ACETAMINOPHEN [Concomitant]
     Route: 048
  7. TEMOZOLOMIDE [Suspect]
     Dates: start: 20120213, end: 20120213

REACTIONS (3)
  - PLEURAL EFFUSION [None]
  - LUNG INFECTION [None]
  - DEATH [None]
